FAERS Safety Report 6297391-6 (Version None)
Quarter: 2009Q3

REPORT INFORMATION
  Report Type: 
  Country: None (occurrence: None)
  Receive Date: 20090805
  Receipt Date: 20090724
  Transmission Date: 20100115
  Serious: Yes (Other)
  Sender: FDA-Public Use
  Company Number: PHHY2009JP31705

PATIENT

DRUGS (2)
  1. TEGRETOL [Suspect]
     Route: 048
  2. WARFARIN POTASSIUM [Interacting]

REACTIONS (3)
  - DRUG EFFECT DECREASED [None]
  - DRUG LEVEL DECREASED [None]
  - EPILEPSY [None]
